FAERS Safety Report 17124371 (Version 1)
Quarter: 2019Q4

REPORT INFORMATION
  Report Type: Spontaneous
  Country: VN (occurrence: VN)
  Receive Date: 20191206
  Receipt Date: 20191206
  Transmission Date: 20200122
  Serious: Yes (Death, Other)
  Sender: FDA-Public Use
  Company Number: VN-BAYER-2019-217391

PATIENT
  Age: 45 Year
  Sex: Male

DRUGS (1)
  1. NEXAVAR [Suspect]
     Active Substance: SORAFENIB
     Indication: HEPATOCELLULAR CARCINOMA
     Dosage: 400 MG, BID
     Route: 048
     Dates: start: 201701, end: 201901

REACTIONS (3)
  - Ascites [None]
  - Hepatocellular carcinoma [Fatal]
  - Metastases to adrenals [Fatal]

NARRATIVE: CASE EVENT DATE: 201901
